FAERS Safety Report 21983665 (Version 4)
Quarter: 2023Q2

REPORT INFORMATION
  Report Type: Spontaneous
  Country: IL (occurrence: IL)
  Receive Date: 20230213
  Receipt Date: 20230417
  Transmission Date: 20230721
  Serious: Yes (Other)
  Sender: FDA-Public Use
  Company Number: IL-002147023-NVSC2023IL029222

PATIENT
  Sex: Male

DRUGS (1)
  1. RITALIN [Suspect]
     Active Substance: METHYLPHENIDATE HYDROCHLORIDE
     Indication: Product used for unknown indication
     Dosage: 1 DOSAGE FORM
     Route: 065

REACTIONS (8)
  - Intracranial pressure increased [Unknown]
  - Feeling of despair [Unknown]
  - Malaise [Unknown]
  - Abdominal distension [Unknown]
  - Mood altered [Unknown]
  - Dry mouth [Unknown]
  - Nervousness [Unknown]
  - Poor quality product administered [Unknown]
